FAERS Safety Report 5681031-0 (Version None)
Quarter: 2008Q1

REPORT INFORMATION
  Report Type: 
  Country: None (occurrence: None)
  Receive Date: 20080326
  Receipt Date: 20080318
  Transmission Date: 20080703
  Serious: Yes (Other)
  Sender: FDA-Public Use
  Company Number: NZ-PFIZER INC-2008026455

PATIENT
  Sex: Female

DRUGS (2)
  1. CHAMPIX [Suspect]
  2. ANTI-ASTHMATICS [Concomitant]

REACTIONS (4)
  - CHEST DISCOMFORT [None]
  - FOAMING AT MOUTH [None]
  - INSOMNIA [None]
  - SUFFOCATION FEELING [None]
